FAERS Safety Report 7642414-2 (Version None)
Quarter: 2011Q3

REPORT INFORMATION
  Report Type: 
  Country: None (occurrence: None)
  Receive Date: 20110728
  Receipt Date: 20100928
  Transmission Date: 20111222
  Serious: No
  Sender: FDA-Public Use
  Company Number: US-MYLANLABS-2010S1017942

PATIENT
  Sex: Female

DRUGS (1)
  1. LEVOTHYROXINE SODIUM [Suspect]

REACTIONS (5)
  - PHARYNGEAL OEDEMA [None]
  - INSOMNIA [None]
  - HYPERTHYROIDISM [None]
  - APHONIA [None]
  - ALOPECIA [None]
